FAERS Safety Report 6902495-8 (Version None)
Quarter: 2010Q3

REPORT INFORMATION
  Report Type: 
  Country: None (occurrence: None)
  Receive Date: 20100802
  Receipt Date: 20100802
  Transmission Date: 20110219
  Serious: Yes (Hospitalization)
  Sender: FDA-Public Use
  Company Number: None

PATIENT
  Sex: Female
  Weight: 85.7298 kg

DRUGS (1)
  1. MIRENA [Suspect]

REACTIONS (3)
  - DEVICE DISLOCATION [None]
  - ECONOMIC PROBLEM [None]
  - PREGNANCY [None]
